FAERS Safety Report 4301457-7 (Version None)
Quarter: 2004Q1

REPORT INFORMATION
  Report Type: 
  Country: None (occurrence: None)
  Receive Date: 20040219
  Receipt Date: 20040210
  Transmission Date: 20041129
  Serious: Yes (Other)
  Sender: FDA-Public Use
  Company Number: 2003-BP-09776BP

PATIENT
  Sex: Male

DRUGS (1)
  1. MOBIC [Suspect]
     Dosage: 7.5 MG (7.5 MG, 1 DAILY X 2 DAYS ONLY) PO
     Route: 048
     Dates: start: 20030901

REACTIONS (1)
  - CHEST DISCOMFORT [None]
